FAERS Safety Report 22160145 (Version 2)
Quarter: 2023Q2

REPORT INFORMATION
  Report Type: Spontaneous
  Country: US (occurrence: US)
  Receive Date: 20230331
  Receipt Date: 20230523
  Transmission Date: 20230721
  Serious: Yes (Other)
  Sender: FDA-Public Use
  Company Number: US-AMGEN-USASP2023052141

PATIENT
  Sex: Male

DRUGS (1)
  1. XGEVA [Suspect]
     Active Substance: DENOSUMAB
     Indication: Prostate cancer metastatic
     Dosage: UNK UNK, Q4WK
     Route: 065

REACTIONS (5)
  - Bone cancer [Unknown]
  - Macular degeneration [Unknown]
  - Uveitis [Unknown]
  - Tooth loss [Unknown]
  - Toothache [Unknown]

NARRATIVE: CASE EVENT DATE: 20211201
